FAERS Safety Report 4630248-2 (Version None)
Quarter: 2005Q2

REPORT INFORMATION
  Report Type: 
  Country: None (occurrence: None)
  Receive Date: 20050405
  Receipt Date: 20050405
  Transmission Date: 20051028
  Serious: No
  Sender: FDA-Public Use
  Company Number: None

PATIENT
  Age: 66 Year
  Sex: Male
  Weight: 122 kg

DRUGS (2)
  1. SPIRONOLACTONE [Suspect]
     Indication: HEPATIC CIRRHOSIS
     Dosage: 150 MG  TWICE A DAY  OTHER
     Route: 050
     Dates: start: 20050210, end: 20050301
  2. SPIRONOLACTONE [Suspect]

REACTIONS (1)
  - BLOOD SODIUM INCREASED [None]
